FAERS Safety Report 9405952 (Version 1)
Quarter: 2013Q3

REPORT INFORMATION
  Report Type: Spontaneous
  Country: IT (occurrence: IT)
  Receive Date: 20130717
  Receipt Date: 20130717
  Transmission Date: 20140515
  Serious: Yes (Hospitalization)
  Sender: FDA-Public Use
  Company Number: IT-GLAXOSMITHKLINE-B0907424A

PATIENT
  Age: 89 Year
  Sex: Male

DRUGS (1)
  1. RYTHMOL SR [Suspect]
     Indication: ATRIAL FIBRILLATION
     Dosage: 650MG PER DAY
     Route: 048
     Dates: start: 20130101, end: 20130527

REACTIONS (4)
  - Balance disorder [Unknown]
  - Sinus bradycardia [Unknown]
  - Syncope [Unknown]
  - Conduction disorder [Unknown]
